FAERS Safety Report 7206272-2 (Version None)
Quarter: 2011Q1

REPORT INFORMATION
  Report Type: 
  Country: None (occurrence: None)
  Receive Date: 20110103
  Receipt Date: 20101221
  Transmission Date: 20110831
  Serious: Yes (Other)
  Sender: FDA-Public Use
  Company Number: PHHY2010FR80432

PATIENT
  Sex: Female
  Weight: 98 kg

DRUGS (5)
  1. PREVISCAN [Concomitant]
     Dosage: 20 MG, UNK
     Route: 048
  2. RADIOTHERAPY [Concomitant]
     Dosage: UNK
  3. CHEMOTHERAPEUTICS,OTHER [Concomitant]
     Dosage: UNK
  4. ZOMETA [Suspect]
     Indication: METASTASES TO BONE
     Dosage: 4 MG, QMO
     Dates: start: 20100415, end: 20101015
  5. HORMONES NOS [Concomitant]
     Dosage: UNK

REACTIONS (9)
  - PURULENT DISCHARGE [None]
  - BONE DISORDER [None]
  - OSTEONECROSIS OF JAW [None]
  - SURGERY [None]
  - BREATH ODOUR [None]
  - PAIN [None]
  - GINGIVAL INFECTION [None]
  - BONE LESION [None]
  - STOMATITIS [None]
